FAERS Safety Report 19313104 (Version 1)
Quarter: 2021Q2

REPORT INFORMATION
  Report Type: Spontaneous
  Country: US (occurrence: US)
  Receive Date: 20210526
  Receipt Date: 20210526
  Transmission Date: 20210717
  Serious: Yes (Other)
  Sender: FDA-Public Use
  Company Number: None

PATIENT
  Age: 28 Year
  Sex: Male
  Weight: 83.25 kg

DRUGS (1)
  1. CREST PRO?HEALTH RINSE [Suspect]
     Active Substance: CETYLPYRIDINIUM CHLORIDE
     Indication: EX-TOBACCO USER
     Dosage: ?          QUANTITY:1 OUNCE(S);OTHER ROUTE:MOUTHWASH? SPIT OUT?
     Route: 048
     Dates: start: 20210524, end: 20210525

REACTIONS (1)
  - Parotid gland enlargement [None]

NARRATIVE: CASE EVENT DATE: 20210525
